FAERS Safety Report 25078556 (Version 1)
Quarter: 2025Q1

REPORT INFORMATION
  Report Type: Report from Study
  Country: US (occurrence: US)
  Receive Date: 20250314
  Receipt Date: 20250314
  Transmission Date: 20250408
  Serious: Yes (Hospitalization)
  Sender: PFIZER
  Company Number: US-PFIZER INC-202500009211

PATIENT
  Age: 82 Year
  Sex: Female
  Weight: 68.492 kg

DRUGS (16)
  1. IBRANCE [Suspect]
     Active Substance: PALBOCICLIB
     Indication: Breast cancer female
     Route: 048
     Dates: start: 20241209, end: 20250106
  2. IBRANCE [Suspect]
     Active Substance: PALBOCICLIB
     Route: 048
  3. ALLOPURINOL [Concomitant]
     Active Substance: ALLOPURINOL
  4. ATORVASTATIN [Concomitant]
     Active Substance: ATORVASTATIN
  5. CALCITRIOL [Concomitant]
     Active Substance: CALCITRIOL
  6. DRISDOL [Concomitant]
     Active Substance: ERGOCALCIFEROL
  7. FERROUS SULFATE [Concomitant]
     Active Substance: FERROUS SULFATE
  8. FOLIC ACID [Concomitant]
     Active Substance: FOLIC ACID
  9. LASIX [Concomitant]
     Active Substance: FUROSEMIDE
  10. GABAPENTIN [Concomitant]
     Active Substance: GABAPENTIN
  11. NIFEDIPINE [Concomitant]
     Active Substance: NIFEDIPINE
  12. OMEPRAZOLE [Concomitant]
     Active Substance: OMEPRAZOLE
  13. VITAMIN C [Concomitant]
     Active Substance: ASCORBIC ACID
  14. FUROSEMIDE [Concomitant]
     Active Substance: FUROSEMIDE
  15. BRIMONIDINE TARTRATE [Concomitant]
     Active Substance: BRIMONIDINE TARTRATE
  16. LATANOPROST [Concomitant]
     Active Substance: LATANOPROST

REACTIONS (3)
  - White blood cell count decreased [Recovering/Resolving]
  - Blood potassium increased [Not Recovered/Not Resolved]
  - Renal disorder [Not Recovered/Not Resolved]

NARRATIVE: CASE EVENT DATE: 20250106
